FAERS Safety Report 6092304-4 (Version None)
Quarter: 2009Q1

REPORT INFORMATION
  Report Type: 
  Country: None (occurrence: None)
  Receive Date: 20090225
  Receipt Date: 20090217
  Transmission Date: 20090719
  Serious: Yes (Hospitalization)
  Sender: FDA-Public Use
  Company Number: B0559864A

PATIENT
  Age: 63 Year
  Sex: Male

DRUGS (11)
  1. ZYLORIC [Suspect]
     Dosage: 300MG PER DAY
     Route: 048
     Dates: start: 20080327, end: 20080407
  2. AUGMENTIN '125' [Suspect]
     Route: 065
     Dates: start: 20080301, end: 20080301
  3. REVLIMID [Suspect]
     Dosage: 25MG PER DAY
     Route: 048
     Dates: start: 20080318, end: 20080407
  4. IMOVANE [Concomitant]
     Route: 065
  5. LEXOMIL [Concomitant]
     Route: 065
  6. LYTOS [Concomitant]
     Route: 065
  7. OGAST [Concomitant]
     Route: 065
  8. SKENAN [Concomitant]
     Route: 065
  9. MORPHINE [Concomitant]
     Route: 065
  10. DEXAMETHASONE [Concomitant]
     Route: 065
     Dates: start: 20080301, end: 20080301
  11. SEROPRAM [Concomitant]
     Route: 065

REACTIONS (9)
  - DERMATITIS EXFOLIATIVE [None]
  - DRUG RASH WITH EOSINOPHILIA AND SYSTEMIC SYMPTOMS [None]
  - EOSINOPHILIA [None]
  - FACE OEDEMA [None]
  - LYMPHADENOPATHY [None]
  - PRURITUS [None]
  - PYREXIA [None]
  - RASH MACULO-PAPULAR [None]
  - URTICARIA [None]
